FAERS Safety Report 12378365 (Version 1)
Quarter: 2016Q2

REPORT INFORMATION
  Report Type: Spontaneous
  Country: DE (occurrence: DE)
  Receive Date: 20160517
  Receipt Date: 20160517
  Transmission Date: 20160815
  Serious: Yes (Other)
  Sender: FDA-Public Use
  Company Number: DE-JNJFOC-20160512593

PATIENT
  Age: 42 Year
  Sex: Male

DRUGS (1)
  1. HALDOL DECANOATE [Suspect]
     Active Substance: HALOPERIDOL DECANOATE
     Indication: PRODUCT USED FOR UNKNOWN INDICATION
     Dosage: EVERY 4-6 WEEKS
     Route: 030

REACTIONS (2)
  - Cerebral infarction [Recovered/Resolved]
  - Lacunar infarction [Unknown]

NARRATIVE: CASE EVENT DATE: 201308
